FAERS Safety Report 20851549 (Version 4)
Quarter: 2023Q2

REPORT INFORMATION
  Report Type: Report from Study
  Country: DE (occurrence: DE)
  Receive Date: 20220520
  Receipt Date: 20230531
  Transmission Date: 20230722
  Serious: Yes (Hospitalization)
  Sender: FDA-Public Use
  Company Number: DE-CELLTRION INC.-2022DE006637

PATIENT

DRUGS (8)
  1. INFLIXIMAB-DYYB [Suspect]
     Active Substance: INFLIXIMAB-DYYB
     Indication: Axial spondyloarthritis
     Dosage: 120 MILLIGRAM, Q2WEEKS
     Route: 058
     Dates: start: 20210212
  2. INFLIXIMAB-DYYB [Suspect]
     Active Substance: INFLIXIMAB-DYYB
     Dosage: 120 MILLIGRAM, Q2WEEKS
     Route: 058
     Dates: start: 20210216
  3. INFLIXIMAB-DYYB [Suspect]
     Active Substance: INFLIXIMAB-DYYB
     Dosage: 120 MILLIGRAM, Q2WEEKS
     Route: 058
     Dates: start: 20210915
  4. ETORICOXIB [Concomitant]
     Active Substance: ETORICOXIB
     Dosage: 90 MG, 7 DAYS PER WEEK
     Dates: start: 20211115
  5. COSENTYX [Concomitant]
     Active Substance: SECUKINUMAB
  6. CELECOXIB [Concomitant]
     Active Substance: CELECOXIB
  7. INFLIXIMAB [Concomitant]
     Active Substance: INFLIXIMAB
  8. ACEMETACIN [Concomitant]
     Active Substance: ACEMETACIN

REACTIONS (8)
  - Tendon pain [Recovered/Resolved]
  - Micturition urgency [Recovered/Resolved]
  - Arthralgia [Recovered/Resolved]
  - Myalgia [Recovered/Resolved]
  - Diarrhoea [Recovered/Resolved]
  - Oral candidiasis [Recovered/Resolved]
  - Tooth infection [Recovered/Resolved]
  - Intentional product use issue [Unknown]

NARRATIVE: CASE EVENT DATE: 20211125
